FAERS Safety Report 8602392-6 (Version None)
Quarter: 2012Q3

REPORT INFORMATION
  Report Type: 
  Country: None (occurrence: None)
  Receive Date: 20120817
  Receipt Date: 19940404
  Transmission Date: 20120928
  Serious: Yes (Hospitalization, Other)
  Sender: FDA-Public Use
  Company Number: US-ROCHE-1099806

PATIENT
  Sex: Female

DRUGS (1)
  1. ACTIVASE [Suspect]
     Indication: ACUTE MYOCARDIAL INFARCTION

REACTIONS (7)
  - VENTRICULAR EXTRASYSTOLES [None]
  - DYSPNOEA [None]
  - NAUSEA [None]
  - SPUTUM DISCOLOURED [None]
  - HAEMORRHAGE [None]
  - CHEST PAIN [None]
  - VOMITING [None]
